FAERS Safety Report 20559845 (Version 2)
Quarter: 2022Q1

REPORT INFORMATION
  Report Type: Report from Study
  Country: CO (occurrence: CO)
  Receive Date: 20220307
  Receipt Date: 20220325
  Transmission Date: 20220424
  Serious: Yes (Other)
  Sender: FDA-Public Use
  Company Number: CO-NOVARTISPH-NVSC2022CO051370

PATIENT
  Sex: Male
  Weight: 80 kg

DRUGS (2)
  1. BROLUCIZUMAB [Suspect]
     Active Substance: BROLUCIZUMAB
     Indication: Macular detachment
     Dosage: UNK, Q3MO (IN LEFT EYE) (DOSE: PATIENT DID NOT REMEMBER)
     Route: 047
     Dates: start: 20211029
  2. BROLUCIZUMAB [Suspect]
     Active Substance: BROLUCIZUMAB
     Indication: Retinal haemorrhage
     Dosage: UNK, Q3MO (DOSE: PATIENT DOES NOT REMEMBER)
     Route: 047
     Dates: start: 20220125

REACTIONS (2)
  - Visual impairment [Unknown]
  - Drug ineffective for unapproved indication [Unknown]
